FAERS Safety Report 5302139-5 (Version None)
Quarter: 2007Q2

REPORT INFORMATION
  Report Type: 
  Country: None (occurrence: None)
  Receive Date: 20070419
  Receipt Date: 20070416
  Transmission Date: 20071010
  Serious: Yes (Death)
  Sender: FDA-Public Use
  Company Number: KR-JNJFOC-20060500532

PATIENT
  Sex: Male
  Weight: 71 kg

DRUGS (7)
  1. RISPERDAL CONSTA [Suspect]
     Route: 030
  2. RISPERDAL CONSTA [Suspect]
     Indication: SCHIZOPHRENIA
     Route: 030
  3. RISPERIDONE [Concomitant]
     Route: 048
  4. RISPERIDONE [Concomitant]
     Route: 048
  5. RISPERIDONE [Concomitant]
     Route: 048
  6. RISPERIDONE [Concomitant]
     Route: 048
  7. RISPERIDONE [Concomitant]
     Indication: SCHIZOPHRENIA
     Route: 048

REACTIONS (1)
  - COMPLETED SUICIDE [None]
